FAERS Safety Report 23179662 (Version 3)
Quarter: 2023Q4

REPORT INFORMATION
  Report Type: Report from Study
  Country: GB (occurrence: GB)
  Receive Date: 20231114
  Receipt Date: 20231218
  Transmission Date: 20240110
  Serious: Yes (Hospitalization, Other)
  Sender: FDA-Public Use
  Company Number: GB-ALXN-202310GBR000368GB

PATIENT
  Sex: Male

DRUGS (3)
  1. SOLIRIS [Suspect]
     Active Substance: ECULIZUMAB
     Indication: Paroxysmal nocturnal haemoglobinuria
     Dosage: 900 MILLIGRAM, Q2W
     Route: 042
  2. PENICILLIN [Concomitant]
     Active Substance: PENICILLIN
     Indication: Prophylaxis
     Dosage: UNK
     Route: 065
  3. SUCRALFATE [Concomitant]
     Active Substance: SUCRALFATE
     Indication: Product used for unknown indication
     Dosage: UNK
     Route: 065

REACTIONS (4)
  - Rectal haemorrhage [Not Recovered/Not Resolved]
  - Contusion [Not Recovered/Not Resolved]
  - Aural polyp [Not Recovered/Not Resolved]
  - Fatigue [Not Recovered/Not Resolved]
